FAERS Safety Report 11376228 (Version 1)
Quarter: 2015Q3

REPORT INFORMATION
  Report Type: Spontaneous
  Country: LT (occurrence: LT)
  Receive Date: 20150813
  Receipt Date: 20150813
  Transmission Date: 20151125
  Serious: Yes (Life-Threatening, Hospitalization)
  Sender: FDA-Public Use
  Company Number: PHHY2015LT096253

PATIENT
  Age: 42 Year
  Sex: Male
  Weight: 95 kg

DRUGS (4)
  1. PARKOPAN [Suspect]
     Active Substance: TRIHEXYPHENIDYL HYDROCHLORIDE
     Indication: COMPLETED SUICIDE
     Route: 048
  2. RISPOLEPT [Suspect]
     Active Substance: RISPERIDONE
     Indication: COMPLETED SUICIDE
     Route: 048
  3. LEPONEX [Suspect]
     Active Substance: CLOZAPINE
     Indication: COMPLETED SUICIDE
     Route: 048
  4. RELANIUM [Suspect]
     Active Substance: DIAZEPAM
     Indication: COMPLETED SUICIDE
     Route: 048

REACTIONS (1)
  - Intentional overdose [Recovered/Resolved]

NARRATIVE: CASE EVENT DATE: 20150629
